FAERS Safety Report 24645390 (Version 2)
Quarter: 2025Q4

REPORT INFORMATION
  Report Type: Spontaneous
  Country: US (occurrence: US)
  Receive Date: 20241121
  Receipt Date: 20251121
  Transmission Date: 20260118
  Serious: No
  Sender: ALVOGEN
  Company Number: US-ALVOGEN-2024094576

PATIENT
  Sex: Female

DRUGS (1)
  1. TERIPARATIDE [Suspect]
     Active Substance: TERIPARATIDE
     Indication: Osteoporotic fracture
     Dosage: STRENGTH: 250MCG/ML?20MCG DAILY
     Route: 058
     Dates: start: 202312

REACTIONS (3)
  - Bite [Unknown]
  - Fall [Unknown]
  - Drug ineffective [Unknown]
